FAERS Safety Report 4547411-1 (Version None)
Quarter: 2005Q1

REPORT INFORMATION
  Report Type: 
  Country: None (occurrence: None)
  Receive Date: 20050107
  Receipt Date: 20041230
  Transmission Date: 20050727
  Serious: Yes (Hospitalization)
  Sender: FDA-Public Use
  Company Number: GB-ROCHE-390913

PATIENT
  Age: 59 Year
  Sex: Male

DRUGS (8)
  1. CAPECITABINE [Suspect]
     Indication: RECTAL CANCER
     Route: 048
     Dates: start: 20041115, end: 20041206
  2. CAPECITABINE [Suspect]
     Route: 048
     Dates: start: 20041213, end: 20041217
  3. IRINOTECAN [Suspect]
     Indication: RECTAL CANCER
     Route: 042
     Dates: start: 20041115, end: 20041206
  4. IRINOTECAN [Suspect]
     Route: 042
     Dates: start: 20041213, end: 20041217
  5. MORPHINE SULFATE [Concomitant]
     Indication: PAIN
     Route: 048
  6. ORAMORPH SR [Concomitant]
     Indication: PAIN
     Route: 048
  7. ATENOLOL [Concomitant]
     Indication: BLOOD PRESSURE
     Route: 048
  8. LANSOPRAZOLE [Concomitant]
     Indication: ANTACID THERAPY
     Route: 048

REACTIONS (9)
  - ANAEMIA [None]
  - DECREASED APPETITE [None]
  - DEHYDRATION [None]
  - DIARRHOEA [None]
  - FATIGUE [None]
  - MALAISE [None]
  - NEUTROPENIA [None]
  - ORAL INTAKE REDUCED [None]
  - WEIGHT DECREASED [None]
